FAERS Safety Report 12313256 (Version 1)
Quarter: 2016Q2

REPORT INFORMATION
  Report Type: Spontaneous
  Country: US (occurrence: None)
  Receive Date: 20160427
  Receipt Date: 20160427
  Transmission Date: 20160815
  Serious: No
  Sender: FDA-Public Use
  Company Number: None

PATIENT
  Age: 33 Year
  Sex: Female

DRUGS (1)
  1. REMICADE [Suspect]
     Active Substance: INFLIXIMAB
     Indication: CROHN^S DISEASE
     Dosage: 500MG DAY 0, 2 WEEKS, 6 WEEKS, THEN Q IV
     Route: 042
     Dates: start: 20160401

REACTIONS (1)
  - Urticaria [None]

NARRATIVE: CASE EVENT DATE: 20160402
